FAERS Safety Report 4688810-7 (Version None)
Quarter: 2005Q2

REPORT INFORMATION
  Report Type: 
  Country: None (occurrence: None)
  Receive Date: 20050613
  Receipt Date: 20050531
  Transmission Date: 20051028
  Serious: Yes (Other)
  Sender: FDA-Public Use
  Company Number: CA-GLAXOSMITHKLINE-A0561483A

PATIENT
  Age: 40 Year
  Sex: Female

DRUGS (7)
  1. PAXIL [Suspect]
     Indication: DRUG USE FOR UNKNOWN INDICATION
     Route: 065
  2. PERCOCET [Suspect]
     Indication: DRUG USE FOR UNKNOWN INDICATION
     Dosage: 2U UNKNOWN
  3. DEXEDRINE [Suspect]
  4. SERAX [Suspect]
     Indication: DRUG USE FOR UNKNOWN INDICATION
     Dosage: 1U UNKNOWN
     Route: 065
  5. SERZONE [Suspect]
     Indication: DRUG USE FOR UNKNOWN INDICATION
     Dosage: 1U UNKNOWN
     Route: 065
  6. TYLENOL (CAPLET) [Suspect]
     Indication: DRUG USE FOR UNKNOWN INDICATION
     Dosage: 4875MG UNKNOWN
     Route: 065
  7. ETHANOL [Concomitant]

REACTIONS (9)
  - CHILLS [None]
  - DRY MOUTH [None]
  - EXTRAPYRAMIDAL DISORDER [None]
  - INTENTIONAL MISUSE [None]
  - LIP DRY [None]
  - MUSCLE TWITCHING [None]
  - SEROTONIN SYNDROME [None]
  - TACHYCARDIA [None]
  - TREMOR [None]
